FAERS Safety Report 15362101 (Version 2)
Quarter: 2018Q3

REPORT INFORMATION
  Report Type: Spontaneous
  Country: US (occurrence: US)
  Receive Date: 20180907
  Receipt Date: 20180907
  Transmission Date: 20181010
  Serious: Yes (Other)
  Sender: FDA-Public Use
  Company Number: US-FRESENIUS KABI-FK201809358

PATIENT
  Age: 7 Year
  Sex: Male

DRUGS (8)
  1. METHOTREXATE (MANUFACTURER UNKNOWN) [Suspect]
     Active Substance: METHOTREXATE
     Indication: HODGKIN^S DISEASE NODULAR SCLEROSIS
     Dosage: 03 G/M2 (ALL ON DAYS 1 AND 15)
     Route: 042
  2. PROCARBAZINE [Suspect]
     Active Substance: PROCARBAZINE
     Indication: HODGKIN^S DISEASE NODULAR SCLEROSIS
     Route: 048
  3. GRANULOCYTE?COLONY STIMULATING FACTOR [Concomitant]
     Active Substance: FILGRASTIM
     Indication: SUPPORTIVE CARE
  4. DOXORUBICIN (MANUFACTURER UNKNOWN) [Suspect]
     Active Substance: DOXORUBICIN
     Indication: HODGKIN^S DISEASE NODULAR SCLEROSIS
     Dosage: ALL ON DAYS 1 AND 15
     Route: 042
  5. PREDNISONE. [Suspect]
     Active Substance: PREDNISONE
     Indication: HODGKIN^S DISEASE NODULAR SCLEROSIS
     Dosage: FROM DAYS 1?14
     Route: 048
  6. CYCLOPHOSPHAMIDE. [Suspect]
     Active Substance: CYCLOPHOSPHAMIDE
     Indication: HODGKIN^S DISEASE NODULAR SCLEROSIS
     Route: 042
  7. VINBLASTINE (MANUFACTURER UNKNOWN) [Suspect]
     Active Substance: VINBLASTINE
     Indication: HODGKIN^S DISEASE NODULAR SCLEROSIS
     Dosage: ALL ON DAYS 1 AND 15
     Route: 042
  8. VINCRISTINE [Suspect]
     Active Substance: VINCRISTINE
     Indication: HODGKIN^S DISEASE NODULAR SCLEROSIS
     Dosage: 1,4 MG/M2
     Route: 042

REACTIONS (3)
  - Splenic infection fungal [Unknown]
  - Febrile neutropenia [Unknown]
  - Bone marrow failure [Unknown]
